FAERS Safety Report 7925127-9 (Version None)
Quarter: 2011Q4

REPORT INFORMATION
  Report Type: 
  Country: None (occurrence: None)
  Receive Date: 20111118
  Receipt Date: 20110401
  Transmission Date: 20120403
  Serious: No
  Sender: FDA-Public Use
  Company Number: US-AMGEN-USASP2011017564

PATIENT
  Age: 79 Year
  Sex: Female

DRUGS (2)
  1. AZITHROMYCIN [Concomitant]
  2. ENBREL [Suspect]
     Indication: RHEUMATOID ARTHRITIS
     Dosage: 50 MG, QWK
     Dates: start: 20110322, end: 20110329

REACTIONS (1)
  - INJECTION SITE PAIN [None]
